FAERS Safety Report 9844006 (Version 2)
Quarter: 2014Q3

REPORT INFORMATION
  Report Type: Spontaneous
  Country: US (occurrence: US)
  Receive Date: 20140126
  Receipt Date: 20140723
  Transmission Date: 20150326
  Serious: Yes (Hospitalization, Other)
  Sender: FDA-Public Use
  Company Number: US-009507513-1401USA011475

PATIENT
  Sex: Female

DRUGS (1)
  1. NUVARING [Suspect]
     Active Substance: ETHINYL ESTRADIOL\ETONOGESTREL
     Indication: CONTRACEPTION
     Dosage: UNK
     Route: 067
     Dates: end: 20121202

REACTIONS (11)
  - Pulmonary embolism [Recovering/Resolving]
  - Cyclic vomiting syndrome [Unknown]
  - Diabetic eye disease [Unknown]
  - Myositis [Unknown]
  - Iron deficiency anaemia [Unknown]
  - Gastritis [Unknown]
  - Anxiety [Unknown]
  - Myalgia [Unknown]
  - Pain [Unknown]
  - Essential hypertension [Unknown]
  - Diabetic retinopathy [Unknown]

NARRATIVE: CASE EVENT DATE: 20121202
